FAERS Safety Report 5845696-2 (Version None)
Quarter: 2008Q3

REPORT INFORMATION
  Report Type: 
  Country: None (occurrence: None)
  Receive Date: 20080814
  Receipt Date: 20080805
  Transmission Date: 20090109
  Serious: Yes (Other)
  Sender: FDA-Public Use
  Company Number: PHHY2008JP17470

PATIENT
  Sex: Male

DRUGS (1)
  1. LUDIOMIL [Suspect]
     Dosage: 25 MG
     Route: 048

REACTIONS (1)
  - VENOUS HAEMORRHAGE [None]
